FAERS Safety Report 26185891 (Version 1)
Quarter: 2025Q4

REPORT INFORMATION
  Report Type: Spontaneous
  Country: US (occurrence: None)
  Receive Date: 20251220
  Receipt Date: 20251220
  Transmission Date: 20260117
  Serious: Yes (Other)
  Sender: FDA-CTU
  Company Number: None

PATIENT
  Age: 40 Year
  Sex: Female
  Weight: 92.25 kg

DRUGS (3)
  1. VARENICLINE [Suspect]
     Active Substance: VARENICLINE
     Indication: Smoking cessation therapy
     Dosage: TWICE A DAY ORAL
     Route: 048
     Dates: start: 20251101, end: 20251212
  2. Flinstone complete [Concomitant]
  3. MELATONIN [Concomitant]
     Active Substance: MELATONIN

REACTIONS (3)
  - Hallucination [None]
  - Aggression [None]
  - Drug hypersensitivity [None]

NARRATIVE: CASE EVENT DATE: 20251214
